FAERS Safety Report 5616074-6 (Version None)
Quarter: 2008Q1

REPORT INFORMATION
  Report Type: 
  Country: None (occurrence: None)
  Receive Date: 20080206
  Receipt Date: 20080125
  Transmission Date: 20080703
  Serious: Yes (Other)
  Sender: FDA-Public Use
  Company Number: RO-PFIZER INC-2008007419

PATIENT
  Age: 23 Year
  Sex: Male

DRUGS (2)
  1. ZELDOX (CAPSULES) [Suspect]
     Route: 048
  2. DEPAKENE [Concomitant]
     Dosage: DAILY DOSE:1500MG

REACTIONS (2)
  - HYPOMANIA [None]
  - PSYCHOMOTOR HYPERACTIVITY [None]
